FAERS Safety Report 11128395 (Version 1)
Quarter: 2015Q2

REPORT INFORMATION
  Report Type: Spontaneous
  Country: GB (occurrence: GB)
  Receive Date: 20150521
  Receipt Date: 20150521
  Transmission Date: 20150821
  Serious: Yes (Other)
  Sender: FDA-Public Use
  Company Number: GB-WATSON-2015-10156

PATIENT
  Age: 23 Year
  Sex: Male
  Weight: 78 kg

DRUGS (1)
  1. CHLORPHENAMINE (UNKNOWN) [Suspect]
     Active Substance: CHLORPHENIRAMINE MALEATE
     Indication: SEASONAL ALLERGY
     Dosage: UNK
     Route: 065
     Dates: start: 20150416

REACTIONS (2)
  - Urticaria [Recovered/Resolved]
  - Hypersensitivity [Recovered/Resolved]

NARRATIVE: CASE EVENT DATE: 20150427
